FAERS Safety Report 6264152-3 (Version None)
Quarter: 2009Q3

REPORT INFORMATION
  Report Type: 
  Country: None (occurrence: None)
  Receive Date: 20090710
  Receipt Date: 20090701
  Transmission Date: 20100115
  Serious: Yes (Hospitalization)
  Sender: FDA-Public Use
  Company Number: SE-PFIZER INC-2009231236

PATIENT
  Age: 74 Year

DRUGS (15)
  1. BLINDED *NO SUBJECT DRUG [Suspect]
     Indication: CARDIAC FAILURE
     Dosage: UNK
     Dates: start: 20080129, end: 20090623
  2. BLINDED *PLACEBO [Suspect]
     Indication: CARDIAC FAILURE
     Dosage: UNK
     Dates: start: 20080129, end: 20090623
  3. BLINDED EPLERENONE [Suspect]
     Indication: CARDIAC FAILURE
     Dosage: UNK
     Dates: start: 20080129, end: 20090623
  4. LEVOTHYROXINE SODIUM [Concomitant]
     Dosage: UNK
     Route: 048
     Dates: start: 19870914
  5. INSULATARD [Concomitant]
     Dosage: UNK
     Route: 058
     Dates: start: 19941208
  6. NOVORAPID [Concomitant]
     Dosage: UNK
     Route: 058
     Dates: start: 19941208
  7. METOPROLOL [Concomitant]
     Dosage: UNK
     Route: 048
     Dates: start: 19981015
  8. METOPROLOL [Concomitant]
     Dosage: 50 MG, 1X/DAY
  9. ACETYLSALICYLIC ACID [Concomitant]
     Dosage: UNK
     Route: 048
     Dates: start: 19981015
  10. SIMVASTATIN [Concomitant]
     Dosage: UNK
     Route: 048
     Dates: start: 19990809
  11. FUROSEMIDE [Concomitant]
     Dosage: UNK
     Route: 048
     Dates: start: 19990810
  12. FUROSEMIDE [Concomitant]
     Dosage: UNK
  13. WARFARIN [Concomitant]
     Dosage: UNK
     Route: 048
     Dates: start: 19990801
  14. CANDESARTAN [Concomitant]
     Dosage: 8 MG, 1X/DAY
     Route: 048
     Dates: start: 20050101
  15. ALLOPURINOL [Concomitant]
     Dosage: UNK
     Route: 048
     Dates: start: 20081110

REACTIONS (3)
  - CARDIAC FAILURE [None]
  - CONDITION AGGRAVATED [None]
  - RENAL IMPAIRMENT [None]
